FAERS Safety Report 19098791 (Version 2)
Quarter: 2021Q2

REPORT INFORMATION
  Report Type: Spontaneous
  Country: CA (occurrence: CA)
  Receive Date: 20210406
  Receipt Date: 20210407
  Transmission Date: 20210717
  Serious: Yes (Life-Threatening, Other)
  Sender: FDA-Public Use
  Company Number: CA-PFIZER INC-2021359332

PATIENT
  Age: 84 Year
  Sex: Male
  Weight: 73 kg

DRUGS (1)
  1. XELJANZ [Suspect]
     Active Substance: TOFACITINIB CITRATE
     Indication: RHEUMATOID ARTHRITIS
     Dosage: 5 MG, 2X/DAY
     Route: 048
     Dates: start: 2017, end: 2021

REACTIONS (3)
  - Angina pectoris [Not Recovered/Not Resolved]
  - Loss of consciousness [Unknown]
  - Mobility decreased [Unknown]

NARRATIVE: CASE EVENT DATE: 2021
